FAERS Safety Report 5823620-6 (Version None)
Quarter: 2008Q3

REPORT INFORMATION
  Report Type: 
  Country: None (occurrence: None)
  Receive Date: 20080725
  Receipt Date: 20080722
  Transmission Date: 20090109
  Serious: Yes (Other)
  Sender: FDA-Public Use
  Company Number: US-BOEHRINGER INGELHEIM GMBH, GERMANY-2008-BP-11066BP

PATIENT
  Sex: Male
  Weight: 100 kg

DRUGS (1)
  1. MELOXICAM [Suspect]
     Route: 048

REACTIONS (1)
  - DRUG EFFECT DECREASED [None]
